FAERS Safety Report 4588412-7 (Version None)
Quarter: 2005Q1

REPORT INFORMATION
  Report Type: 
  Country: None (occurrence: None)
  Receive Date: 20050215
  Receipt Date: 20050215
  Transmission Date: 20050727
  Serious: No
  Sender: FDA-Public Use
  Company Number: None

PATIENT
  Sex: Female

DRUGS (3)
  1. FORTEO [Suspect]
     Indication: OSTEOPOROSIS
     Dosage: 20MCG   QD   SUBCUTANEO
     Route: 058
     Dates: start: 20050115, end: 20050212
  2. AVAPRO [Concomitant]
  3. CA SUPPLEMENTS [Concomitant]

REACTIONS (3)
  - HEART RATE INCREASED [None]
  - PALPITATIONS [None]
  - RASH [None]
